FAERS Safety Report 14364152 (Version 3)
Quarter: 2018Q1

REPORT INFORMATION
  Report Type: Report from Study
  Country: US (occurrence: US)
  Receive Date: 20180108
  Receipt Date: 20180206
  Transmission Date: 20180509
  Serious: Yes (Hospitalization)
  Sender: FDA-Public Use
  Company Number: US-PFIZER INC-2017551483

PATIENT
  Age: 80 Year
  Sex: Female
  Weight: 42.36 kg

DRUGS (34)
  1. PALBOCICLIB [Suspect]
     Active Substance: PALBOCICLIB
     Indication: ORAL CAVITY CANCER METASTATIC
     Dosage: 125 MG, QD DAYS 1-21
     Route: 048
     Dates: start: 20170525
  2. PALBOCICLIB [Suspect]
     Active Substance: PALBOCICLIB
     Dosage: 100 MG, QD DAYS 1-21
     Route: 048
     Dates: start: 20170808, end: 20171226
  3. BETIMOL [Concomitant]
     Active Substance: TIMOLOL
     Dosage: UNK
     Dates: start: 20080619
  4. CLINDAMYCIN PHOSPHATE. [Concomitant]
     Active Substance: CLINDAMYCIN PHOSPHATE
     Dosage: UNK
     Dates: start: 20171129
  5. ONDANSETRON HCL [Concomitant]
     Active Substance: ONDANSETRON HYDROCHLORIDE
     Indication: NAUSEA
     Dosage: 8 MG, 1 DF, EVERY 8 HOURS AS NEEDED
     Route: 048
     Dates: start: 20170303
  6. POTASSIUM CHLORIDE. [Concomitant]
     Active Substance: POTASSIUM CHLORIDE
     Dosage: 40 MEQ (2 TABLETS) DAILY
     Route: 048
     Dates: start: 20170725
  7. TIMOLOL MALEATE. [Concomitant]
     Active Substance: TIMOLOL MALEATE
     Dosage: UNK
  8. MAALOX ANTACID [Concomitant]
     Active Substance: ALUMINUM HYDROXIDE\DIMETHICONE\MAGNESIUM HYDROXIDE
     Indication: ORAL PAIN
     Dosage: MAGIC MOUTHWASH 15ML QID PRN
     Dates: start: 20170725
  9. MINOCYCLINE HCL [Concomitant]
     Active Substance: MINOCYCLINE HYDROCHLORIDE
     Dosage: 100 MG (1 TABLET) TWICE A DAY
     Route: 048
     Dates: start: 20171108
  10. CETUXIMAB. [Suspect]
     Active Substance: CETUXIMAB
     Indication: ORAL CAVITY CANCER METASTATIC
     Dosage: 250 MG/M2, WEEKLY
     Route: 042
     Dates: start: 20170525, end: 20171219
  11. LIDOCAINE/PRILOCAINE [Concomitant]
     Dosage: APPLY TO PORT SITE AND COVER WITH PLASTIC WRAP 1 HOUR PRIOR TO TREATMENT
     Dates: start: 20170303
  12. PROCHLORPERAZINE MALEATE. [Concomitant]
     Active Substance: PROCHLORPERAZINE MALEATE
     Indication: NAUSEA
     Dosage: 10 MG (1 TABLET) EVERY 6 HOUR AS NEEDED
     Route: 048
     Dates: start: 20170303
  13. AMITRIPTYLINE HCL [Concomitant]
     Active Substance: AMITRIPTYLINE
     Dosage: UNK
     Route: 048
  14. ATORVASTATIN CALCIUM. [Concomitant]
     Active Substance: ATORVASTATIN CALCIUM
     Dosage: 40 MG (1 TABLET) DAILY
     Route: 048
  15. MUPIROCIN. [Concomitant]
     Active Substance: MUPIROCIN
     Dosage: UNK UNK, 2X/DAY
     Dates: start: 20171012
  16. XARELTO [Concomitant]
     Active Substance: RIVAROXABAN
     Dosage: 20 MG (1 TABLET) BY MOUTH DAILY
     Route: 048
     Dates: start: 20170927
  17. LIDOCAINE. [Concomitant]
     Active Substance: LIDOCAINE
     Indication: ORAL PAIN
     Dosage: MAGIC MOUTHWASH 15ML QID PRN
     Dates: start: 20170725
  18. LASIX [Suspect]
     Active Substance: FUROSEMIDE
     Dosage: 1 TABLET, DAILY
     Route: 048
     Dates: end: 20171027
  19. CALCIUM/VITAMIN D NOS [Concomitant]
     Dosage: UNK
     Dates: start: 20080619
  20. CLOPIDOGREL BISULFATE. [Concomitant]
     Active Substance: CLOPIDOGREL BISULFATE
     Dosage: 75 MG (1 TABLET) DAILY
     Route: 048
  21. ENSURE [Concomitant]
     Active Substance: AMINO ACIDS\DEXTROSE\ELECTROLYTES NOS\SOYBEAN OIL\VITAMINS
     Dosage: 2-4 CANS PER DAYS, DAYS WAS 0, OTY WAS 1?237ML BOTTLE
     Route: 048
     Dates: start: 20171108
  22. MAGNESIUM OXIDE. [Concomitant]
     Active Substance: MAGNESIUM OXIDE
     Dosage: 400 MG (1 TABLET), 2X/DAY
     Route: 048
     Dates: start: 20171108
  23. BACTRIM DS [Concomitant]
     Active Substance: SULFAMETHOXAZOLE\TRIMETHOPRIM
     Dosage: [SULFAMETHOXAZOLE, 800MG]/[TRIMETHOPRIM 160MG], 1 TABLET TWICE DAILY
     Route: 048
     Dates: start: 20171115
  24. VAGIFEM [Concomitant]
     Active Substance: ESTRADIOL
     Dosage: 1 TAB TWICE WEEKLY
  25. XARELTO [Concomitant]
     Active Substance: RIVAROXABAN
     Dosage: 15 MG (1 TABLET) PO BID WITH FOOD FOR 3 WEEKS
     Route: 048
     Dates: start: 20170927
  26. AMBIEN [Concomitant]
     Active Substance: ZOLPIDEM TARTRATE
     Dosage: UNK
  27. MOMETASONE FUROATE. [Concomitant]
     Active Substance: MOMETASONE FUROATE
     Dosage: APPLY TO THE FACE DAILY
     Dates: start: 20171129
  28. PANTOPRAZOLE SODIUM. [Concomitant]
     Active Substance: PANTOPRAZOLE SODIUM
     Dosage: 40 MG, 1 TABLET DAILY
     Route: 048
  29. SYNTHROID [Concomitant]
     Active Substance: LEVOTHYROXINE SODIUM
     Dosage: 75 UG, 1 TABLET DAILY
     Route: 048
     Dates: start: 20081003
  30. BENADRYL [Concomitant]
     Active Substance: DIPHENHYDRAMINE HYDROCHLORIDE
     Indication: ORAL PAIN
     Dosage: MAGIC MOUTHWASH 15ML QID PRN
     Dates: start: 20170725
  31. KETOCONAZOLE. [Concomitant]
     Active Substance: KETOCONAZOLE
     Dosage: TWICE A DAY UNTIL CLEAR
     Dates: start: 20171129
  32. ONDANSETRON HCL [Concomitant]
     Active Substance: ONDANSETRON HYDROCHLORIDE
     Indication: VOMITING
  33. PREDNISONE. [Concomitant]
     Active Substance: PREDNISONE
     Dosage: 20 MG (1 TABLET) DAILY
     Route: 048
     Dates: start: 20170607
  34. VAGIFEM [Concomitant]
     Active Substance: ESTRADIOL
     Dosage: 25 UG (1 DF), INTRAVAGINALLY ONCE DAILY FOR 2 WEEKS
     Route: 067

REACTIONS (2)
  - Hypokalaemia [Recovered/Resolved]
  - Lung infection [Recovered/Resolved]

NARRATIVE: CASE EVENT DATE: 20171222
